FAERS Safety Report 21380705 (Version 3)
Quarter: 2022Q4

REPORT INFORMATION
  Report Type: Spontaneous
  Country: BR (occurrence: BR)
  Receive Date: 20220927
  Receipt Date: 20221005
  Transmission Date: 20230113
  Serious: Yes (Other)
  Sender: FDA-Public Use
  Company Number: BR-PFIZER INC-202201097827

PATIENT
  Age: 81 Year
  Sex: Female

DRUGS (4)
  1. LORAZEPAM [Suspect]
     Active Substance: LORAZEPAM
     Indication: Insomnia
     Dosage: 1 MG, 1X/DAY
  2. LORAZEPAM [Suspect]
     Active Substance: LORAZEPAM
     Indication: Anxiety
  3. ENALAPRIL MALEATE [Suspect]
     Active Substance: ENALAPRIL MALEATE
     Indication: Hypertension
     Dosage: UNK
  4. ATENOLOL [Concomitant]
     Active Substance: ATENOLOL
     Indication: Cardiac disorder
     Dosage: UNK

REACTIONS (5)
  - Drug dependence [Unknown]
  - Cardiac disorder [Unknown]
  - Feeling of despair [Unknown]
  - Arthralgia [Not Recovered/Not Resolved]
  - Abnormal behaviour [Unknown]
